FAERS Safety Report 5828000-5 (Version None)
Quarter: 2008Q3

REPORT INFORMATION
  Report Type: 
  Country: None (occurrence: None)
  Receive Date: 20080728
  Receipt Date: 20080605
  Transmission Date: 20090109
  Serious: Yes (Other)
  Sender: FDA-Public Use
  Company Number: PERC20080049

PATIENT
  Sex: Female

DRUGS (1)
  1. PERCOCET [Suspect]

REACTIONS (2)
  - DRUG EFFECT DECREASED [None]
  - HEPATIC ENZYME ABNORMAL [None]
